FAERS Safety Report 24388795 (Version 2)
Quarter: 2024Q4

REPORT INFORMATION
  Report Type: Report from Study
  Country: JP (occurrence: JP)
  Receive Date: 20241002
  Receipt Date: 20241106
  Transmission Date: 20250115
  Serious: Yes (Disabling)
  Sender: EISAI
  Company Number: JP-Eisai-202408158_LEQ_P_1

PATIENT
  Age: 86 Year
  Sex: Female

DRUGS (4)
  1. LEQEMBI [Suspect]
     Active Substance: LECANEMAB-IRMB
     Indication: Cognitive disorder
     Route: 042
     Dates: start: 20240601
  2. LEQEMBI [Suspect]
     Active Substance: LECANEMAB-IRMB
     Route: 042
     Dates: start: 20240914, end: 20240914
  3. PYRAZOLONE [Concomitant]
     Dates: start: 20240925
  4. PYRAZOLONE [Concomitant]
     Dates: start: 20240810, end: 20240924

REACTIONS (1)
  - Thalamus haemorrhage [Recovering/Resolving]

NARRATIVE: CASE EVENT DATE: 20240919
